FAERS Safety Report 13431126 (Version 5)
Quarter: 2017Q2

REPORT INFORMATION
  Report Type: Spontaneous
  Country: IT (occurrence: IT)
  Receive Date: 20170412
  Receipt Date: 20170601
  Transmission Date: 20170830
  Serious: Yes (Hospitalization)
  Sender: FDA-Public Use
  Company Number: PHHY2017IT054353

PATIENT
  Age: 32 Year
  Sex: Female

DRUGS (1)
  1. GILENYA [Suspect]
     Active Substance: FINGOLIMOD HYDROCHLORIDE
     Indication: MULTIPLE SCLEROSIS
     Dosage: 1 DF, QD
     Route: 065
     Dates: end: 20170508

REACTIONS (7)
  - Palpitations [Unknown]
  - Dyspnoea [Recovering/Resolving]
  - Tachycardia [Not Recovered/Not Resolved]
  - Asthmatic crisis [Recovering/Resolving]
  - Sense of oppression [Unknown]
  - Hypersensitivity [Not Recovered/Not Resolved]
  - Mite allergy [Unknown]

NARRATIVE: CASE EVENT DATE: 20170407
